FAERS Safety Report 12612698 (Version 10)
Quarter: 2017Q1

REPORT INFORMATION
  Report Type: Report from Study
  Country: TH (occurrence: TH)
  Receive Date: 20160801
  Receipt Date: 20170221
  Transmission Date: 20170428
  Serious: Yes (Death, Hospitalization, Other)
  Sender: FDA-Public Use
  Company Number: TH-TAKEDA-2016MPI006851

PATIENT
  Age: 55 Year
  Sex: Female
  Weight: 44.2 kg

DRUGS (14)
  1. ACYCLOVIR                          /00587301/ [Concomitant]
     Active Substance: ACYCLOVIR
  2. IXAZOMIB [Suspect]
     Active Substance: IXAZOMIB
     Indication: PLASMA CELL MYELOMA
     Dosage: 3.0 MG, UNK
     Route: 048
     Dates: start: 20160130, end: 20160721
  3. SENNOKOTT [Concomitant]
     Dosage: UNK
     Route: 048
  4. CHALK                              /07357001/ [Concomitant]
     Dosage: 1.5 G, UNK
     Route: 065
  5. VILERM [Concomitant]
     Dosage: 200 MG, UNK
     Route: 048
  6. ZOLEDRONIC ACID [Concomitant]
     Active Substance: ZOLEDRONIC ACID
     Dosage: UNK
     Route: 042
  7. VITAMIN B COMPLEX [Concomitant]
     Active Substance: CYANOCOBALAMIN\DEXPANTHENOL\NIACINAMIDE\PYRIDOXINE HYDROCHLORIDE\RIBOFLAVIN 5^-PHOSPHATE SODIUM\THIAMINE HYDROCHLORIDE\VITAMIN B COMPLEX
     Dosage: UNK
     Route: 048
  8. NORMAL SALINE [Concomitant]
     Active Substance: SODIUM CHLORIDE
     Dosage: UNK
     Route: 065
  9. BACTRIM [Concomitant]
     Active Substance: SULFAMETHOXAZOLE\TRIMETHOPRIM
     Dosage: UNK
     Route: 048
  10. ZINCAPS [Concomitant]
     Dosage: 25 MG, UNK
     Route: 048
  11. FERMATE [Concomitant]
     Dosage: 200 MG, UNK
     Route: 048
  12. CEFTRIAXONE. [Concomitant]
     Active Substance: CEFTRIAXONE
  13. FOLIC ACID. [Concomitant]
     Active Substance: FOLIC ACID
     Dosage: 5 MG, UNK
     Route: 048
  14. CALCIFEROL                         /00107901/ [Concomitant]
     Dosage: 2000 IU, UNK
     Route: 048

REACTIONS (1)
  - Subarachnoid haemorrhage [Fatal]

NARRATIVE: CASE EVENT DATE: 20160722
